FAERS Safety Report 13156197 (Version 1)
Quarter: 2017Q1

REPORT INFORMATION
  Report Type: Spontaneous
  Country: FR (occurrence: FR)
  Receive Date: 20170126
  Receipt Date: 20170126
  Transmission Date: 20170428
  Serious: Yes (Life-Threatening, Hospitalization, Disabling, Other)
  Sender: FDA-Public Use
  Company Number: FR-TEVA-731928ROM

PATIENT
  Sex: Male

DRUGS (2)
  1. COTRIMOXAZOLE [Suspect]
     Active Substance: SULFAMETHOXAZOLE\TRIMETHOPRIM
     Indication: STREPTOCOCCAL URINARY TRACT INFECTION
     Dates: start: 20160128, end: 20160211
  2. COTRIMOXAZOLE [Suspect]
     Active Substance: SULFAMETHOXAZOLE\TRIMETHOPRIM
     Indication: GARDNERELLA INFECTION

REACTIONS (37)
  - Gastritis [Unknown]
  - Pain [Not Recovered/Not Resolved]
  - Muscular weakness [Not Recovered/Not Resolved]
  - Lung disorder [Not Recovered/Not Resolved]
  - Generalised erythema [Unknown]
  - Gait disturbance [Not Recovered/Not Resolved]
  - Proctalgia [Not Recovered/Not Resolved]
  - Growth of eyelashes [Unknown]
  - Swelling [Unknown]
  - Skin discolouration [Unknown]
  - Arthralgia [Not Recovered/Not Resolved]
  - Urinary incontinence [Not Recovered/Not Resolved]
  - Onychomadesis [Not Recovered/Not Resolved]
  - Toxic epidermal necrolysis [Recovered/Resolved with Sequelae]
  - Pyrexia [Unknown]
  - Eye disorder [Unknown]
  - Periorbital haemorrhage [Unknown]
  - Abdominal pain [Not Recovered/Not Resolved]
  - Eye disorder [Not Recovered/Not Resolved]
  - Dyschezia [Not Recovered/Not Resolved]
  - Mental disorder [Not Recovered/Not Resolved]
  - Burning sensation [Unknown]
  - Epilepsy [Not Recovered/Not Resolved]
  - Skin exfoliation [Unknown]
  - Weight decreased [Unknown]
  - Pharmacophobia [Not Recovered/Not Resolved]
  - Pruritus [Not Recovered/Not Resolved]
  - Skin disorder [Unknown]
  - Hair texture abnormal [Unknown]
  - Oesophagitis [Unknown]
  - Eye injury [Not Recovered/Not Resolved]
  - Gallbladder injury [Not Recovered/Not Resolved]
  - Vision blurred [Unknown]
  - Mouth haemorrhage [Unknown]
  - Fatigue [Not Recovered/Not Resolved]
  - Lacrimation increased [Not Recovered/Not Resolved]
  - Dyspnoea [Not Recovered/Not Resolved]

NARRATIVE: CASE EVENT DATE: 2016
